FAERS Safety Report 4292355-6 (Version None)
Quarter: 2004Q1

REPORT INFORMATION
  Report Type: 
  Country: None (occurrence: None)
  Receive Date: 20040126
  Receipt Date: 20031110
  Transmission Date: 20041129
  Serious: No
  Sender: FDA-Public Use
  Company Number: USA030843754

PATIENT
  Age: 82 Year
  Sex: Female
  Weight: 56 kg

DRUGS (8)
  1. FORTEO [Suspect]
     Indication: OSTEOPOROSIS
     Dosage: 20 UG/DAY
     Dates: start: 20030806
  2. FOSAMAX [Concomitant]
  3. CALCIUM [Concomitant]
  4. POTASSIUM CHLORIDE [Concomitant]
  5. ZINC SULFATE [Concomitant]
  6. MAGNESIUM [Concomitant]
  7. VITAMINS NOS [Concomitant]
  8. AVAPRO [Concomitant]

REACTIONS (2)
  - INJECTION SITE ERYTHEMA [None]
  - INJECTION SITE HAEMORRHAGE [None]
